FAERS Safety Report 5043078-7 (Version None)
Quarter: 2006Q2

REPORT INFORMATION
  Report Type: 
  Country: None (occurrence: None)
  Receive Date: 20060628
  Receipt Date: 20060616
  Transmission Date: 20061013
  Serious: Yes (Other)
  Sender: FDA-Public Use
  Company Number: CHWYE741416JUN06

PATIENT
  Age: 48 Year
  Sex: Male

DRUGS (2)
  1. EFFEXOR [Suspect]
     Indication: DEPRESSION
     Dosage: 75 MG 1X PER 1 DAY ORAL
     Route: 048
     Dates: start: 20060503, end: 20060506
  2. ENTUMIN (CLOTIAPINE) [Concomitant]

REACTIONS (6)
  - DRY MOUTH [None]
  - EYELID OEDEMA [None]
  - HEADACHE [None]
  - ORTHOSTATIC HYPOTENSION [None]
  - SKIN FISSURES [None]
  - URINARY RETENTION [None]
